FAERS Safety Report 12485551 (Version 1)
Quarter: 2016Q2

REPORT INFORMATION
  Report Type: Spontaneous
  Country: US (occurrence: US)
  Receive Date: 20160621
  Receipt Date: 20160621
  Transmission Date: 20160815
  Serious: No
  Sender: FDA-Public Use
  Company Number: US-MYLANLABS-2016M1012956

PATIENT

DRUGS (2)
  1. DOXEPIN [Suspect]
     Active Substance: DOXEPIN
     Indication: SLEEP DISORDER
     Dosage: UNK
  2. DOXEPIN [Suspect]
     Active Substance: DOXEPIN
     Indication: OFF LABEL USE

REACTIONS (1)
  - Dyspepsia [Unknown]
